FAERS Safety Report 11689705 (Version 1)
Quarter: 2015Q4

REPORT INFORMATION
  Report Type: Spontaneous
  Country: BR (occurrence: BR)
  Receive Date: 20151102
  Receipt Date: 20151102
  Transmission Date: 20160304
  Serious: Yes (Disabling, Other)
  Sender: FDA-Public Use
  Company Number: BR-BRISTOL-MYERS SQUIBB COMPANY-BMS-2015-073345

PATIENT
  Sex: Female

DRUGS (2)
  1. HYDREA [Suspect]
     Active Substance: HYDROXYUREA
     Indication: POLYCYTHAEMIA VERA
     Dosage: 500 MG, TID
     Route: 048
  2. HYDREA [Suspect]
     Active Substance: HYDROXYUREA
     Dosage: 500 MG, QD
     Route: 048

REACTIONS (6)
  - Pruritus [Not Recovered/Not Resolved]
  - Platelet count decreased [Unknown]
  - Pain [Not Recovered/Not Resolved]
  - Blood count abnormal [Unknown]
  - Dizziness [Not Recovered/Not Resolved]
  - Phlebotomy [Unknown]
